FAERS Safety Report 9644396 (Version 1)
Quarter: 2013Q4

REPORT INFORMATION
  Report Type: Spontaneous
  Country: CA (occurrence: CA)
  Receive Date: 20131025
  Receipt Date: 20131025
  Transmission Date: 20140711
  Serious: Yes (Hospitalization)
  Sender: FDA-Public Use
  Company Number: CA-AMGEN-CANSP2013074909

PATIENT
  Sex: Male

DRUGS (1)
  1. NEUPOGEN [Suspect]
     Indication: PLASMA CELL MYELOMA
     Dosage: 1ML/300MCG
     Route: 065

REACTIONS (2)
  - Neutrophil count abnormal [Unknown]
  - Drug effect decreased [Unknown]
